FAERS Safety Report 13823174 (Version 1)
Quarter: 2017Q3

REPORT INFORMATION
  Report Type: Report from Study
  Country: None (occurrence: US)
  Receive Date: 20170801
  Receipt Date: 20170801
  Transmission Date: 20171127
  Serious: Yes (Other)
  Sender: FDA-Public Use
  Company Number: US-ABBVIE-17K-163-2050530-00

PATIENT
  Age: 66 Year
  Sex: Male
  Weight: 87.17 kg

DRUGS (3)
  1. PREVACID [Concomitant]
     Active Substance: LANSOPRAZOLE
     Indication: GASTROOESOPHAGEAL REFLUX DISEASE
  2. HUMIRA [Suspect]
     Active Substance: ADALIMUMAB
     Indication: PSORIASIS
     Route: 058
     Dates: start: 20170327
  3. MIRTAZAPINE. [Suspect]
     Active Substance: MIRTAZAPINE
     Indication: PRODUCT USED FOR UNKNOWN INDICATION
     Route: 048

REACTIONS (20)
  - Panic attack [Not Recovered/Not Resolved]
  - Palpitations [Recovered/Resolved]
  - Retching [Recovered/Resolved]
  - Vitreous floaters [Not Recovered/Not Resolved]
  - Vision blurred [Not Recovered/Not Resolved]
  - Hyperhidrosis [Not Recovered/Not Resolved]
  - Constipation [Not Recovered/Not Resolved]
  - Photopsia [Recovered/Resolved]
  - Ulcerative keratitis [Not Recovered/Not Resolved]
  - Joint range of motion decreased [Recovered/Resolved]
  - Eye injury [Not Recovered/Not Resolved]
  - Corneal pigmentation [Not Recovered/Not Resolved]
  - Abdominal discomfort [Recovered/Resolved]
  - Feeding disorder [Recovered/Resolved]
  - Burning sensation [Recovered/Resolved]
  - Suicidal ideation [Recovered/Resolved]
  - Myalgia [Not Recovered/Not Resolved]
  - Anticipatory anxiety [Not Recovered/Not Resolved]
  - Weight decreased [Not Recovered/Not Resolved]
  - Nightmare [Not Recovered/Not Resolved]

NARRATIVE: CASE EVENT DATE: 2017
